FAERS Safety Report 4975556-0 (Version None)
Quarter: 2006Q2

REPORT INFORMATION
  Report Type: 
  Country: None (occurrence: None)
  Receive Date: 20060410
  Receipt Date: 20060322
  Transmission Date: 20061013
  Serious: Yes (Death, Other)
  Sender: FDA-Public Use
  Company Number: JP200601000721

PATIENT
  Age: 76 Year
  Sex: Male
  Weight: 56.5 kg

DRUGS (11)
  1. GEMZAR [Suspect]
     Indication: PANCREATIC CARCINOMA
     Dosage: 1400 MG, OTHER, INTRAVENOUS
     Route: 042
     Dates: start: 20051128, end: 20051212
  2. OXYCONTIN [Concomitant]
  3. FAMOTIDINE [Concomitant]
  4. FOIPAN (CAMOSTAT MESILATE) [Concomitant]
  5. MINIPRESS /USA/ (PRAZOSIN HYDROCHLORIDE) [Concomitant]
  6. MEVALOTIN /JPN/ (PRAVASTATIN SODIUM) [Concomitant]
  7. DEPAS (ETIZOLAM) [Concomitant]
  8. PANTOSIN (PANTETHINE) [Concomitant]
  9. MAGNESIUM OXIDE (MAGNESIUM OXIDE) [Concomitant]
  10. DECADRON [Concomitant]
  11. ZOFRAN [Concomitant]

REACTIONS (5)
  - CEREBRAL INFARCTION [None]
  - DISSEMINATED INTRAVASCULAR COAGULATION [None]
  - DYSPHAGIA [None]
  - GENERAL PHYSICAL HEALTH DETERIORATION [None]
  - RESPIRATORY FAILURE [None]
